FAERS Safety Report 11846249 (Version 2)
Quarter: 2017Q2

REPORT INFORMATION
  Report Type: Report from Study
  Country: None (occurrence: BR)
  Receive Date: 20151217
  Receipt Date: 20170604
  Transmission Date: 20170829
  Serious: Yes (Hospitalization, Other)
  Sender: FDA-Public Use
  Company Number: BR-ABBVIE-15K-020-1517707-00

PATIENT
  Age: 67 Year
  Sex: Male
  Weight: 92 kg

DRUGS (11)
  1. SOMALGIM CARDIO [Concomitant]
     Indication: CHEST PAIN
     Route: 048
     Dates: start: 201609
  2. LOSARTAN. [Concomitant]
     Active Substance: LOSARTAN
     Indication: HYPERTENSION
     Route: 048
     Dates: start: 2011
  3. LOSARTAN. [Concomitant]
     Active Substance: LOSARTAN
     Indication: BLOOD PRESSURE ABNORMAL
     Route: 048
     Dates: start: 2015
  4. RIVOTRIL [Concomitant]
     Active Substance: CLONAZEPAM
     Indication: ANXIOLYTIC THERAPY
     Route: 048
     Dates: start: 2012
  5. METHOTREXATE. [Concomitant]
     Active Substance: METHOTREXATE
     Indication: PSORIASIS
     Route: 048
  6. ZETIA [Concomitant]
     Active Substance: EZETIMIBE
     Indication: PRODUCT USED FOR UNKNOWN INDICATION
     Route: 048
     Dates: start: 20150901
  7. SOMALGIM CARDIO [Concomitant]
     Indication: CARDIAC DISORDER
     Route: 048
     Dates: start: 20150901
  8. SOMALGIM CARDIO [Concomitant]
     Indication: PROPHYLAXIS
  9. SOMALGIM CARDIO [Concomitant]
     Indication: CARDIOVASCULAR DISORDER
  10. FOLIC ACID. [Concomitant]
     Active Substance: FOLIC ACID
     Indication: PRODUCT USED FOR UNKNOWN INDICATION
     Route: 048
  11. HUMIRA [Suspect]
     Active Substance: ADALIMUMAB
     Indication: PSORIASIS
     Route: 058
     Dates: start: 20130101, end: 20150801

REACTIONS (4)
  - Coronary artery occlusion [Recovered/Resolved]
  - Malaise [Unknown]
  - Hypertension [Unknown]
  - Arthritis [Unknown]

NARRATIVE: CASE EVENT DATE: 20150801
